FAERS Safety Report 17012387 (Version 5)
Quarter: 2020Q1

REPORT INFORMATION
  Report Type: Spontaneous
  Country: US (occurrence: US)
  Receive Date: 20191108
  Receipt Date: 20200110
  Transmission Date: 20200409
  Serious: Yes (Hospitalization)
  Sender: FDA-Public Use
  Company Number: US-ACTELION-A-NJ2019-197607

PATIENT
  Age: 47 Year
  Sex: Male
  Weight: 102.04 kg

DRUGS (4)
  1. ADCIRCA [Concomitant]
     Active Substance: TADALAFIL
     Dosage: 40 MG
  2. UPTRAVI [Suspect]
     Active Substance: SELEXIPAG
     Indication: PULMONARY ARTERIAL HYPERTENSION
     Dosage: 200 MCG, BID
     Route: 048
  3. SILDENAFIL CITRATE. [Concomitant]
     Active Substance: SILDENAFIL CITRATE
  4. LETAIRIS [Concomitant]
     Active Substance: AMBRISENTAN
     Dosage: 10 MG

REACTIONS (12)
  - Pain in extremity [Unknown]
  - Pain [Unknown]
  - Burning sensation [Unknown]
  - Bacterial sepsis [Unknown]
  - Dyspnoea [Recovered/Resolved]
  - Malaise [Unknown]
  - Tooth infection [Recovered/Resolved]
  - Headache [Unknown]
  - Nausea [Unknown]
  - Choking sensation [Unknown]
  - Asthenia [Recovered/Resolved]
  - Feeling of body temperature change [Unknown]

NARRATIVE: CASE EVENT DATE: 20191104
